FAERS Safety Report 5228763-6 (Version None)
Quarter: 2007Q1

REPORT INFORMATION
  Report Type: 
  Country: None (occurrence: None)
  Receive Date: 20070205
  Receipt Date: 20070122
  Transmission Date: 20070707
  Serious: Yes (Hospitalization)
  Sender: FDA-Public Use
  Company Number: PHHO2006ZA20452

PATIENT
  Age: 19 Year
  Sex: Female

DRUGS (1)
  1. GLEEVEC [Suspect]
     Indication: CHRONIC MYELOID LEUKAEMIA
     Dosage: 400 MG, QD
     Route: 048
     Dates: start: 20060820, end: 20061120

REACTIONS (3)
  - DYSPNOEA [None]
  - HAEMOTHORAX [None]
  - THORACIC CAVITY DRAINAGE [None]
